FAERS Safety Report 10221271 (Version 1)
Quarter: 2014Q2

REPORT INFORMATION
  Report Type: Spontaneous
  Country: US (occurrence: US)
  Receive Date: 20140606
  Receipt Date: 20140606
  Transmission Date: 20141212
  Serious: Yes (Other)
  Sender: FDA-Public Use
  Company Number: US-PFIZER INC-2014154119

PATIENT
  Sex: Female

DRUGS (3)
  1. CELEBREX [Suspect]
     Dosage: UNK
  2. LYRICA [Suspect]
     Dosage: UNK
  3. ALPRAZOLAM [Concomitant]
     Dosage: UNK

REACTIONS (7)
  - Pulmonary oedema [Unknown]
  - Rash [Unknown]
  - Scab [Unknown]
  - Splinter [Unknown]
  - Vision blurred [Unknown]
  - Peripheral swelling [Unknown]
  - Anorgasmia [Unknown]
